FAERS Safety Report 4624013-X (Version None)
Quarter: 2005Q1

REPORT INFORMATION
  Report Type: 
  Country: None (occurrence: None)
  Receive Date: 20050316
  Receipt Date: 20050316
  Transmission Date: 20050727
  Serious: Yes (Other)
  Sender: FDA-Public Use
  Company Number: None

PATIENT
  Age: 55 Year
  Sex: Female
  Weight: 99.7913 kg

DRUGS (1)
  1. GABAPENTIN [Suspect]
     Indication: CONVULSION
     Dosage: 600MG ONE PO TID
     Route: 048
     Dates: start: 20050214

REACTIONS (1)
  - CONVULSION [None]
